FAERS Safety Report 12992844 (Version 1)
Quarter: 2016Q4

REPORT INFORMATION
  Report Type: Other
  Country: LB (occurrence: LB)
  Receive Date: 20161202
  Receipt Date: 20161202
  Transmission Date: 20170207
  Serious: Yes (Hospitalization)
  Sender: FDA-Public Use
  Company Number: LB-HETERO LABS LTD-1060315

PATIENT
  Age: 74 Year
  Sex: Male

DRUGS (1)
  1. LINEZOLID. [Suspect]
     Active Substance: LINEZOLID
     Indication: ANTIBIOTIC THERAPY
     Route: 048

REACTIONS (2)
  - Mitochondrial cytopathy [Recovered/Resolved]
  - Toxicity to various agents [Recovered/Resolved]
